FAERS Safety Report 7504365-3 (Version None)
Quarter: 2011Q2

REPORT INFORMATION
  Report Type: 
  Country: None (occurrence: None)
  Receive Date: 20110525
  Receipt Date: 20110520
  Transmission Date: 20111010
  Serious: Yes (Other)
  Sender: FDA-Public Use
  Company Number: CHPA2011US07017

PATIENT
  Age: 13 Year
  Sex: Female
  Weight: 45.351 kg

DRUGS (1)
  1. VOLTAREN [Suspect]
     Indication: JOINT SWELLING
     Dosage: 2 G, QD
     Route: 061
     Dates: start: 20110515, end: 20110516

REACTIONS (4)
  - ASTHMA [None]
  - OFF LABEL USE [None]
  - VOMITING [None]
  - ABDOMINAL PAIN UPPER [None]
